FAERS Safety Report 18688777 (Version 3)
Quarter: 2021Q2

REPORT INFORMATION
  Report Type: Spontaneous
  Country: RU (occurrence: RU)
  Receive Date: 20201231
  Receipt Date: 20210408
  Transmission Date: 20210717
  Serious: Yes (Other)
  Sender: FDA-Public Use
  Company Number: RU-AMGEN-RUSSP2020209100

PATIENT
  Age: 30 Year
  Sex: Female
  Weight: 40 kg

DRUGS (4)
  1. PROLIA [Suspect]
     Active Substance: DENOSUMAB
     Indication: HYPERCALCAEMIA
     Dosage: 60 MILLIGRAM
     Route: 058
     Dates: start: 2019
  2. CINACALCET HCL [Suspect]
     Active Substance: CINACALCET HYDROCHLORIDE
     Indication: HYPERPARATHYROIDISM PRIMARY
     Dosage: 60 MILLIGRAM, QD
     Route: 065
     Dates: start: 2019
  3. VITAMIN D [ERGOCALCIFEROL] [Concomitant]
     Active Substance: ERGOCALCIFEROL
     Dosage: UNK
  4. CALCIUM [Concomitant]
     Active Substance: CALCIUM
     Dosage: UNK

REACTIONS (14)
  - Parathyroid tumour benign [Unknown]
  - Lithiasis [Unknown]
  - Ovarian cyst [Unknown]
  - Splenomegaly [Unknown]
  - Osteoporosis [Unknown]
  - Drug ineffective [Unknown]
  - Nephrolithiasis [Unknown]
  - Hypocalcaemia [Recovered/Resolved]
  - Hungry bone syndrome [Unknown]
  - Myelofibrosis [Unknown]
  - Hypochromic anaemia [Recovered/Resolved]
  - High turnover osteopathy [Unknown]
  - Off label use [Unknown]
  - Adenomyosis [Unknown]

NARRATIVE: CASE EVENT DATE: 2019
